FAERS Safety Report 8515425-2 (Version None)
Quarter: 2012Q2

REPORT INFORMATION
  Report Type: 
  Country: None (occurrence: None)
  Receive Date: 20120406
  Receipt Date: 20090511
  Transmission Date: 20120825
  Serious: Yes (Other)
  Sender: FDA-Public Use
  Company Number: PHEH2009US03581

PATIENT
  Sex: Female
  Weight: 71.1 kg

DRUGS (6)
  1. LIPITOR [Concomitant]
  2. NOVOLOG [Concomitant]
  3. TASIGNA [Suspect]
     Indication: GASTROINTESTINAL NEOPLASM
     Dosage: 400MG, BID, ORAL
     Route: 048
     Dates: start: 20090401
  4. INSULIN ASPART (INSULIN ASPART) [Concomitant]
  5. LEVEMIR [Concomitant]
  6. LISINOPRIL [Concomitant]

REACTIONS (2)
  - HYPERGLYCAEMIA [None]
  - HYPOTENSION [None]
